FAERS Safety Report 17932073 (Version 2)
Quarter: 2020Q4

REPORT INFORMATION
  Report Type: Report from Study
  Country: None (occurrence: US)
  Receive Date: 20200624
  Receipt Date: 20201019
  Transmission Date: 20210113
  Serious: Yes (Death)
  Sender: FDA-Public Use
  Company Number: US-ABBVIE-20K-163-3455094-00

PATIENT
  Age: 77 Year
  Sex: Female

DRUGS (1)
  1. HUMIRA [Suspect]
     Active Substance: ADALIMUMAB
     Indication: PSORIASIS
     Route: 058
     Dates: start: 201411

REACTIONS (1)
  - Death [Fatal]

NARRATIVE: CASE EVENT DATE: 20200621
